FAERS Safety Report 9537508 (Version 1)
Quarter: 2013Q3

REPORT INFORMATION
  Report Type: Spontaneous
  Country: FR (occurrence: FR)
  Receive Date: 20130919
  Receipt Date: 20130919
  Transmission Date: 20140515
  Serious: Yes (Death, Hospitalization)
  Sender: FDA-Public Use
  Company Number: FR-BRISTOL-MYERS SQUIBB COMPANY-19352129

PATIENT
  Age: 75 Year
  Sex: Male

DRUGS (3)
  1. HYDREA CAPS 500 MG [Suspect]
     Indication: MYELODYSPLASTIC SYNDROME
     Dosage: MAY13:10 CAPS/WEEK?JUN13:DOSE INCREASED TO 6/D THEN 8/D?INTER-02JUL,STARTED WITH 1/D THEN 4
     Route: 048
     Dates: start: 201301
  2. KARDEGIC [Concomitant]
     Dates: start: 201204
  3. ZELITREX [Concomitant]

REACTIONS (4)
  - Necrotising fasciitis [Fatal]
  - Thrombocytopenia [Not Recovered/Not Resolved]
  - Anaemia [Unknown]
  - Off label use [Unknown]
